FAERS Safety Report 9191925 (Version 1)
Quarter: 2013Q1

REPORT INFORMATION
  Report Type: Spontaneous
  Country: US (occurrence: US)
  Receive Date: 20130327
  Receipt Date: 20130327
  Transmission Date: 20140127
  Serious: No
  Sender: FDA-Public Use
  Company Number: US-BIOGENIDEC-2013BI027257

PATIENT
  Sex: Male

DRUGS (1)
  1. AVONEX [Suspect]
     Indication: MULTIPLE SCLEROSIS
     Route: 030
     Dates: start: 19971209, end: 20130101

REACTIONS (8)
  - Fall [Unknown]
  - Limb injury [Unknown]
  - Renal abscess [Unknown]
  - Weight decreased [Unknown]
  - Stress [Unknown]
  - Nephrolithiasis [Unknown]
  - Decreased activity [Unknown]
  - Malaise [Unknown]
